FAERS Safety Report 20976220 (Version 4)
Quarter: 2024Q4

REPORT INFORMATION
  Report Type: Spontaneous
  Country: US (occurrence: US)
  Receive Date: 20220617
  Receipt Date: 20241202
  Transmission Date: 20250115
  Serious: No
  Sender: PFIZER
  Company Number: US-PFIZER INC-PV202200004236

PATIENT
  Age: 71 Year
  Sex: Female

DRUGS (1)
  1. IBRANCE [Suspect]
     Active Substance: PALBOCICLIB
     Indication: Breast cancer female
     Dosage: 125 MG, CYCLIC, 1 TABLET A DAY FOR 21 DAYS AND 7 DAYS OFF
     Route: 048

REACTIONS (1)
  - Blood test abnormal [Unknown]
